FAERS Safety Report 23446294 (Version 1)
Quarter: 2024Q1

REPORT INFORMATION
  Report Type: Report from Study
  Country: MY (occurrence: None)
  Receive Date: 20240126
  Receipt Date: 20240126
  Transmission Date: 20240410
  Serious: Yes (Death)
  Sender: FDA-Public Use
  Company Number: 2024A017080

PATIENT
  Age: 20131 Day
  Sex: Female

DRUGS (1)
  1. FASLODEX [Suspect]
     Active Substance: FULVESTRANT
     Indication: Breast cancer
     Route: 030
     Dates: start: 20230203, end: 20230217

REACTIONS (1)
  - Death [Fatal]

NARRATIVE: CASE EVENT DATE: 20230203
